FAERS Safety Report 24309059 (Version 4)
Quarter: 2025Q1

REPORT INFORMATION
  Report Type: Spontaneous
  Country: IE (occurrence: IE)
  Receive Date: 20240911
  Receipt Date: 20250108
  Transmission Date: 20250408
  Serious: Yes (Other)
  Sender: TEVA
  Company Number: None

PATIENT
  Age: 69 Year
  Sex: Female
  Weight: 56 kg

DRUGS (3)
  1. OMEPRAZOLE [Suspect]
     Active Substance: OMEPRAZOLE
     Indication: Product used for unknown indication
     Dosage: OMEPRAZOLE TEVA, TAKEN IN THE MORNING
     Route: 048
     Dates: start: 20240705, end: 20240726
  2. PANTOPRAZOLE [Suspect]
     Active Substance: PANTOPRAZOLE
     Indication: Product used for unknown indication
     Dosage: PANTOPRAZOLE TEVA PHARMA, TAKEN AT NIGHT
     Route: 048
     Dates: start: 20240705
  3. CREON [Concomitant]
     Active Substance: PANCRELIPASE AMYLASE\PANCRELIPASE LIPASE\PANCRELIPASE PROTEASE
     Indication: Pancreatectomy
     Dosage: UP TO 10 CAPSULES PER DAY ^FOR LIFE^
     Route: 048
     Dates: start: 20240410

REACTIONS (4)
  - Sensitive skin [Recovered/Resolved]
  - Alopecia [Recovered/Resolved]
  - Product communication issue [Recovered/Resolved]
  - Skin exfoliation [Recovered/Resolved]

NARRATIVE: CASE EVENT DATE: 20240101
